FAERS Safety Report 16744260 (Version 1)
Quarter: 2019Q3

REPORT INFORMATION
  Report Type: Spontaneous
  Country: US (occurrence: US)
  Receive Date: 20190827
  Receipt Date: 20190827
  Transmission Date: 20191005
  Serious: Yes (Hospitalization, Other)
  Sender: FDA-Public Use
  Company Number: US-TEVA-2019-US-1099187

PATIENT
  Age: 7 Decade
  Sex: Male

DRUGS (16)
  1. METHYLPREDNISOLONE. [Suspect]
     Active Substance: METHYLPREDNISOLONE
     Dosage: ORAL TAPER OVER 3 WEEKS
     Route: 048
  2. TRIAMCINOLONE [Suspect]
     Active Substance: TRIAMCINOLONE
     Indication: UVEITIS
     Route: 061
     Dates: start: 201802
  3. AMPICILLIN [Suspect]
     Active Substance: AMPICILLIN
     Indication: LISTERIOSIS
     Route: 042
     Dates: start: 2018
  4. AMPICILLIN [Suspect]
     Active Substance: AMPICILLIN
     Indication: ENDOPHTHALMITIS
  5. METHYLPREDNISOLONE. [Suspect]
     Active Substance: METHYLPREDNISOLONE
     Indication: AUTOIMMUNE COLITIS
     Route: 042
     Dates: start: 201712
  6. CEFTAZIDIME. [Suspect]
     Active Substance: CEFTAZIDIME
     Indication: ANTIBIOTIC THERAPY
     Route: 065
     Dates: start: 2018
  7. IPILIMUMAB [Suspect]
     Active Substance: IPILIMUMAB
     Indication: METASTATIC MALIGNANT MELANOMA
     Dosage: ADMINISTERED IN CYCLES OF 21 DAYS ALONGSIDE NIVOLUMAB
     Route: 065
     Dates: start: 201701, end: 201704
  8. AMPICILLIN [Suspect]
     Active Substance: AMPICILLIN
     Indication: ANTIBIOTIC THERAPY
  9. GENTAMICIN. [Suspect]
     Active Substance: GENTAMICIN
     Indication: ENDOPHTHALMITIS
  10. NIVOLUMAB [Suspect]
     Active Substance: NIVOLUMAB
     Dosage: DOSE INCREASED
     Route: 065
     Dates: start: 201704, end: 201712
  11. NIVOLUMAB [Suspect]
     Active Substance: NIVOLUMAB
     Indication: METASTATIC MALIGNANT MELANOMA
     Dosage: ADMINISTERED IN CYCLES OF 21 DAYS ALONGSIDE IPILIMUMAB
     Route: 065
     Dates: start: 201701, end: 201704
  12. INFLIXIMAB [Suspect]
     Active Substance: INFLIXIMAB
     Indication: AUTOIMMUNE COLITIS
     Dosage: SINGLE DOSE
     Route: 065
     Dates: start: 201712, end: 201712
  13. GENTAMICIN. [Suspect]
     Active Substance: GENTAMICIN
     Indication: LISTERIOSIS
     Route: 065
     Dates: start: 2018
  14. VANCOMYCIN [Suspect]
     Active Substance: VANCOMYCIN
     Indication: ANTIBIOTIC THERAPY
     Route: 050
     Dates: start: 2018
  15. TRIAMCINOLONE [Suspect]
     Active Substance: TRIAMCINOLONE
     Route: 050
     Dates: start: 2018
  16. GENTAMICIN. [Suspect]
     Active Substance: GENTAMICIN
     Indication: ANTIBIOTIC THERAPY

REACTIONS (6)
  - Autoimmune colitis [Unknown]
  - Addison^s disease [Unknown]
  - Listeriosis [Not Recovered/Not Resolved]
  - Endophthalmitis [Not Recovered/Not Resolved]
  - Drug ineffective [Unknown]
  - Autoimmune hypothyroidism [Unknown]

NARRATIVE: CASE EVENT DATE: 2017
